FAERS Safety Report 19024992 (Version 1)
Quarter: 2021Q1

REPORT INFORMATION
  Report Type: Spontaneous
  Country: US (occurrence: US)
  Receive Date: 20210317
  Receipt Date: 20210317
  Transmission Date: 20210420
  Serious: Yes (Other)
  Sender: FDA-Public Use
  Company Number: None

PATIENT
  Age: 27 Year
  Sex: Female
  Weight: 63 kg

DRUGS (2)
  1. OXYTOCIN, KETAMINE MUCOLOX NASAL SPRAY [Suspect]
     Active Substance: KETAMINE\OXYTOCIN
     Indication: THINKING ABNORMAL
     Route: 055
     Dates: start: 20200618, end: 20200827
  2. OXYTOCIN, KETAMINE MUCOLOX NASAL SPRAY [Suspect]
     Active Substance: KETAMINE\OXYTOCIN
     Indication: ANXIETY
     Route: 055
     Dates: start: 20200618, end: 20200827

REACTIONS (6)
  - Mania [None]
  - Insomnia [None]
  - Substance-induced psychotic disorder [None]
  - Paranoia [None]
  - Delusion of grandeur [None]
  - Panic attack [None]

NARRATIVE: CASE EVENT DATE: 20210311
